FAERS Safety Report 7935822-3 (Version None)
Quarter: 2011Q4

REPORT INFORMATION
  Report Type: 
  Country: None (occurrence: None)
  Receive Date: 20111123
  Receipt Date: 20111115
  Transmission Date: 20120403
  Serious: Yes (Hospitalization)
  Sender: FDA-Public Use
  Company Number: US-CELGENEUS-163-21660-11112258

PATIENT
  Age: 51 Year
  Sex: Female

DRUGS (5)
  1. PEGFILGRASTIM [Suspect]
     Indication: BREAST CANCER
     Dosage: 6 MILLIGRAM
     Route: 065
     Dates: start: 20101208
  2. ABRAXANE [Suspect]
     Indication: BREAST CANCER
     Dosage: 80 MILLIGRAM
     Route: 065
  3. DOXORUBICIN HCL [Suspect]
     Indication: BREAST CANCER
     Dosage: 60 MILLIGRAM
     Route: 065
     Dates: start: 20101208
  4. BEVACIZUMAB [Suspect]
     Indication: BREAST CANCER
     Route: 065
     Dates: start: 20101208
  5. CYCLOPHOSPHAMIDE [Suspect]
     Indication: BREAST CANCER
     Dosage: 600 MILLIGRAM
     Route: 065
     Dates: start: 20101208

REACTIONS (1)
  - SYNCOPE [None]
